FAERS Safety Report 6411663-3 (Version None)
Quarter: 2009Q4

REPORT INFORMATION
  Report Type: 
  Country: None (occurrence: None)
  Receive Date: 20091020
  Receipt Date: 20091007
  Transmission Date: 20100525
  Serious: Yes (Hospitalization)
  Sender: FDA-Public Use
  Company Number: 2009AC000107

PATIENT
  Age: 72 Year
  Sex: Male

DRUGS (21)
  1. DIGOXIN [Suspect]
     Dosage: 0.25 MG; QD; PO
     Route: 048
  2. DIGOXIN [Suspect]
     Dosage: PO
     Route: 048
  3. BLOOD PRESSURE MEDICTION [Concomitant]
  4. JANUVIA [Concomitant]
  5. FLOMAX [Concomitant]
  6. GLIMEPIRIDE [Concomitant]
  7. CLONIDINE [Concomitant]
  8. WARFARIN SODIUM [Concomitant]
  9. DILTIAZEM [Concomitant]
  10. METFORMIN HCL [Concomitant]
  11. LISINOPRIL [Concomitant]
  12. SIMVASTATIN [Concomitant]
  13. HYDROCHLOROTHIAZIDE [Concomitant]
  14. FINASTERIDE [Concomitant]
  15. CARVEDILOL [Concomitant]
  16. COREG [Concomitant]
  17. LIPITOR [Concomitant]
  18. GLYBURIDE [Concomitant]
  19. NIASPAN [Concomitant]
  20. ASPIRIN [Concomitant]
  21. LISINOPRIL [Concomitant]

REACTIONS (7)
  - ASTHENIA [None]
  - CEREBROVASCULAR ACCIDENT [None]
  - DIZZINESS [None]
  - FATIGUE [None]
  - HYPOTENSION [None]
  - LISTLESS [None]
  - MOBILITY DECREASED [None]
